FAERS Safety Report 15435122 (Version 1)
Quarter: 2018Q3

REPORT INFORMATION
  Report Type: Spontaneous
  Country: GB (occurrence: GB)
  Receive Date: 20180927
  Receipt Date: 20180927
  Transmission Date: 20181010
  Serious: Yes (Other)
  Sender: FDA-Public Use
  Company Number: GB-BAYER-2018-176136

PATIENT
  Age: 73 Year
  Sex: Female

DRUGS (3)
  1. LENVATINIB [Concomitant]
     Active Substance: LENVATINIB
     Indication: PAPILLARY THYROID CANCER
     Dosage: UNK (DOSE REDUCED)
  2. LENVATINIB [Concomitant]
     Active Substance: LENVATINIB
     Indication: PAPILLARY THYROID CANCER
  3. SORAFENIB (RAF KINASE INHIBITOR) [Suspect]
     Active Substance: SORAFENIB
     Indication: PAPILLARY THYROID CANCER

REACTIONS (1)
  - Cardiotoxicity [None]
